FAERS Safety Report 23154029 (Version 1)
Quarter: 2023Q4

REPORT INFORMATION
  Report Type: Spontaneous
  Country: US (occurrence: US)
  Receive Date: 20231107
  Receipt Date: 20231107
  Transmission Date: 20240110
  Serious: No
  Sender: FDA-Public Use
  Company Number: US-CURIUM-2023000709

PATIENT
  Age: 86 Year
  Sex: Female

DRUGS (2)
  1. SODIUM PYROPHOSPHATE [Suspect]
     Active Substance: SODIUM PYROPHOSPHATE
     Indication: Cardiac amyloidosis
     Route: 051
     Dates: start: 20230905, end: 20230905
  2. SODIUM PERTECHNETATE TC 99M [Suspect]
     Active Substance: TECHNETIUM TC-99M SODIUM PERTECHNETATE
     Indication: Cardiac amyloidosis
     Route: 051
     Dates: start: 20230905, end: 20230905

REACTIONS (3)
  - Off label use [Recovered/Resolved]
  - Drug ineffective for unapproved indication [Recovered/Resolved]
  - Radiation overdose [Recovered/Resolved]

NARRATIVE: CASE EVENT DATE: 20230905
